FAERS Safety Report 9547150 (Version 2)
Quarter: 2013Q4

REPORT INFORMATION
  Report Type: Spontaneous
  Country: GB (occurrence: GB)
  Receive Date: 20130924
  Receipt Date: 20131022
  Transmission Date: 20140711
  Serious: Yes (Other)
  Sender: FDA-Public Use
  Company Number: GB-ROCHE-1279803

PATIENT
  Age: 42 Year
  Sex: Male

DRUGS (11)
  1. XELODA [Suspect]
     Indication: OESOPHAGEAL ADENOCARCINOMA
     Dosage: MOST RECENT DOSE ON 15/AUG/2013 AND 05/SEP/2013, 3 WEEKS EACH
     Route: 048
     Dates: start: 20130725
  2. VITAMIN A [Concomitant]
     Route: 048
  3. CREON [Concomitant]
     Route: 048
  4. LANSOPRAZOLE [Concomitant]
     Route: 048
  5. HUMALOG [Concomitant]
     Indication: TYPE 1 DIABETES MELLITUS
     Route: 058
  6. LANTUS [Concomitant]
     Indication: TYPE 1 DIABETES MELLITUS
     Dosage: 18 UNITS
     Route: 065
  7. SALBUTAMOL [Concomitant]
     Dosage: MDI PM
     Route: 065
  8. FLUCLOXACILLIN [Concomitant]
     Route: 048
  9. COLISTIN [Concomitant]
     Dosage: 1 MEGA UNIT NEBS
     Route: 065
  10. AZITHROMYCIN [Concomitant]
     Dosage: M/W/F
     Route: 048
  11. VITAMIN E [Concomitant]
     Dosage: 200 UNITS ALTERNATE
     Route: 048

REACTIONS (1)
  - Hyperglycaemia [Recovered/Resolved]
